APPROVED DRUG PRODUCT: CEFTRIAXONE
Active Ingredient: CEFTRIAXONE SODIUM
Strength: EQ 1GM BASE/VIAL
Dosage Form/Route: INJECTABLE;INTRAMUSCULAR, INTRAVENOUS
Application: A065169 | Product #003 | TE Code: AP
Applicant: SANDOZ INC
Approved: May 9, 2005 | RLD: No | RS: Yes | Type: RX